FAERS Safety Report 6252468-6 (Version None)
Quarter: 2009Q3

REPORT INFORMATION
  Report Type: 
  Country: None (occurrence: None)
  Receive Date: 20090701
  Receipt Date: 20090624
  Transmission Date: 20100115
  Serious: Yes (Hospitalization)
  Sender: FDA-Public Use
  Company Number: GR-BRISTOL-MYERS SQUIBB COMPANY-14682579

PATIENT
  Age: 34 Year
  Sex: Female

DRUGS (1)
  1. IRBESARTAN [Suspect]
     Indication: HYPERTENSION

REACTIONS (2)
  - PRE-ECLAMPSIA [None]
  - PREGNANCY [None]
